FAERS Safety Report 9364204 (Version 1)
Quarter: 2013Q2

REPORT INFORMATION
  Report Type: Spontaneous
  Country: IT (occurrence: IT)
  Receive Date: 20130624
  Receipt Date: 20130624
  Transmission Date: 20140414
  Serious: Yes (Death, Life-Threatening)
  Sender: FDA-Public Use
  Company Number: IT-TEVA-412556ISR

PATIENT
  Age: 85 Year
  Sex: Male

DRUGS (2)
  1. TICLOPIDINA DOROM 250 MG [Suspect]
     Indication: MYOCARDIAL INFARCTION
     Dosage: 250 MILLIGRAM DAILY;
     Route: 048
     Dates: start: 20130201, end: 20130531
  2. CORDARONE 200 MG [Suspect]
     Indication: ATRIAL FIBRILLATION
     Dosage: 200 MILLIGRAM DAILY;
     Route: 048
     Dates: start: 20130306, end: 20130531

REACTIONS (3)
  - Neutropenia [Fatal]
  - Bronchitis [Fatal]
  - Hypothyroidism [Unknown]
